FAERS Safety Report 4468458-X (Version None)
Quarter: 2004Q4

REPORT INFORMATION
  Report Type: 
  Country: None (occurrence: None)
  Receive Date: 20041006
  Receipt Date: 20041001
  Transmission Date: 20050328
  Serious: Yes (Other)
  Sender: FDA-Public Use
  Company Number: 002830

PATIENT
  Age: 58 Year
  Sex: Female

DRUGS (4)
  1. MEDROXYPROGESTERONE ACETATE [Suspect]
     Dates: start: 19910101, end: 19970101
  2. PROVERA [Suspect]
     Dates: start: 19910101, end: 19970101
  3. PREMARIN [Suspect]
     Dates: start: 19910101, end: 19970101
  4. MEDROXYPROGESTERONE ACETATE [Suspect]
     Dates: start: 19970916, end: 19991201

REACTIONS (1)
  - BREAST CANCER FEMALE [None]
